FAERS Safety Report 8092115-4 (Version None)
Quarter: 2012Q1

REPORT INFORMATION
  Report Type: 
  Country: None (occurrence: None)
  Receive Date: 20120129
  Receipt Date: 20111104
  Transmission Date: 20120608
  Serious: No
  Sender: FDA-Public Use
  Company Number: US-ABBOTT-11P-163-0871839-00

PATIENT
  Sex: Female
  Weight: 68.1 kg

DRUGS (4)
  1. METHOTREXATE [Suspect]
     Indication: PSORIASIS
  2. HUMIRA [Suspect]
     Indication: PSORIASIS
  3. METHOTREXATE [Suspect]
     Indication: PUSTULAR PSORIASIS
     Dates: start: 20100101, end: 20110101
  4. HUMIRA [Suspect]
     Indication: PUSTULAR PSORIASIS
     Route: 058
     Dates: start: 20100101, end: 20100101

REACTIONS (5)
  - PSORIASIS [None]
  - OFF LABEL USE [None]
  - DRUG INEFFECTIVE [None]
  - ILL-DEFINED DISORDER [None]
  - PUSTULAR PSORIASIS [None]
